FAERS Safety Report 9516985 (Version 1)
Quarter: 2013Q1

REPORT INFORMATION
  Report Type: Spontaneous
  Country: US (occurrence: None)
  Receive Date: 20130305
  Receipt Date: 20130305
  Transmission Date: 20140127
  Serious: Yes (Other)
  Sender: FDA-Public Use
  Company Number: 163-21880-11122578

PATIENT
  Age: 81 Year
  Sex: Female
  Weight: 79.83 kg

DRUGS (11)
  1. REVLIMID (LENALIDOMIDE) [Suspect]
     Indication: MYELODYSPLASTIC SYNDROME
     Route: 048
     Dates: start: 20111104, end: 2011
  2. BLOOD PRESSURE MEDICATION (ANTIHYPERTENSIVES) [Concomitant]
  3. MV [Concomitant]
  4. PRADAXA (DABIGATRAN ETEXILATE MESILATE) [Concomitant]
  5. LOSARTAN [Concomitant]
  6. ATENOLOL [Concomitant]
  7. TIKOSYN (DOFETILIDE) [Concomitant]
  8. SYNTHROID (LEVOTHYROXINE SODIUM) [Concomitant]
  9. VITAMIN B12 (CYANOCOBALAMIN) [Concomitant]
  10. OMEPRAZOLE [Concomitant]
  11. ARANESP (DARBEPOETIN ALFA) [Concomitant]

REACTIONS (2)
  - Rash generalised [None]
  - Pruritus [None]
